FAERS Safety Report 15143522 (Version 1)
Quarter: 2018Q3

REPORT INFORMATION
  Report Type: Spontaneous
  Country: CN (occurrence: CN)
  Receive Date: 20180713
  Receipt Date: 20180713
  Transmission Date: 20181010
  Serious: Yes (Other)
  Sender: FDA-Public Use
  Company Number: CN-IMPAX LABORATORIES, INC-2018-IPXL-02398

PATIENT
  Age: 5 Year
  Sex: Female

DRUGS (2)
  1. GENTIAN VIOLET [Suspect]
     Active Substance: GENTIAN VIOLET
     Indication: HELMINTHIC INFECTION
     Dosage: UNK
     Route: 061
  2. ALBENZA [Suspect]
     Active Substance: ALBENDAZOLE
     Indication: HELMINTHIC INFECTION
     Dosage: 2 DF, UNK
     Route: 048
     Dates: start: 201806

REACTIONS (2)
  - Helminthic infection [Unknown]
  - Disease recurrence [Unknown]

NARRATIVE: CASE EVENT DATE: 201807
